FAERS Safety Report 9691439 (Version 1)
Quarter: 2013Q4

REPORT INFORMATION
  Report Type: Spontaneous
  Country: US (occurrence: US)
  Receive Date: 20131115
  Receipt Date: 20131115
  Transmission Date: 20140711
  Serious: Yes (Other)
  Sender: FDA-Public Use
  Company Number: CHPA2013US016875

PATIENT
  Age: 55 Year
  Sex: Female

DRUGS (2)
  1. EXCEDRIN MIGRAINE [Suspect]
     Indication: HEADACHE
     Dosage: 4-6 DF, QD
     Route: 048
     Dates: start: 2003
  2. EXCEDRIN MIGRAINE [Suspect]
     Indication: OFF LABEL USE

REACTIONS (5)
  - Hiatus hernia [Not Recovered/Not Resolved]
  - Gastrooesophageal reflux disease [Not Recovered/Not Resolved]
  - Vaginal prolapse [Recovered/Resolved]
  - Osteoarthritis [Unknown]
  - Incorrect dose administered [Unknown]
